FAERS Safety Report 8327907-7 (Version None)
Quarter: 2012Q2

REPORT INFORMATION
  Report Type: 
  Country: None (occurrence: None)
  Receive Date: 20120502
  Receipt Date: 20120423
  Transmission Date: 20120825
  Serious: Yes (Hospitalization)
  Sender: FDA-Public Use
  Company Number: US-BAYER-2012-038486

PATIENT
  Age: 25 Year
  Sex: Female
  Weight: 101.59 kg

DRUGS (14)
  1. KEPPRA [Concomitant]
  2. TOPAMAX [Concomitant]
  3. CELEXA [Concomitant]
  4. ZOFRAN [Concomitant]
     Dosage: UNK
     Route: 048
     Dates: start: 20110713
  5. DILANTIN [Concomitant]
  6. LORAZEPAM [Concomitant]
  7. YASMIN [Suspect]
     Dosage: UNK
     Route: 048
     Dates: start: 20101101, end: 20110701
  8. IBUPROFEN [Concomitant]
     Dosage: UNK
     Route: 048
     Dates: start: 20110713
  9. CITALOPRAM [Concomitant]
  10. DROSPIRENONE AND ETHINYL ESTRADIOL [Suspect]
     Dosage: UNK
     Route: 048
     Dates: start: 20101101, end: 20110701
  11. PROPOFOL [Concomitant]
  12. KLONOPIN [Concomitant]
  13. TOPAMAX [Concomitant]
  14. YAZ [Suspect]
     Dosage: UNK
     Route: 048

REACTIONS (7)
  - INTRACRANIAL VENOUS SINUS THROMBOSIS [None]
  - CEREBRAL INFARCTION [None]
  - INJURY [None]
  - PAIN [None]
  - EMOTIONAL DISTRESS [None]
  - GENERAL PHYSICAL HEALTH DETERIORATION [None]
  - ANXIETY [None]
